FAERS Safety Report 6124458-5 (Version None)
Quarter: 2009Q1

REPORT INFORMATION
  Report Type: 
  Country: None (occurrence: None)
  Receive Date: 20090317
  Receipt Date: 20090317
  Transmission Date: 20090719
  Serious: Yes (Other)
  Sender: FDA-Public Use
  Company Number: None

PATIENT
  Age: 41 Year
  Sex: Female
  Weight: 63.5036 kg

DRUGS (2)
  1. CEFDINIR [Suspect]
     Indication: EAR INFECTION
     Dosage: 2 PILLS A DAY
     Dates: start: 20090204, end: 20090219
  2. CEFDINIR [Suspect]
     Indication: SINUSITIS
     Dosage: 2 PILLS A DAY
     Dates: start: 20090204, end: 20090219

REACTIONS (4)
  - RASH GENERALISED [None]
  - SKIN BURNING SENSATION [None]
  - SKIN EXFOLIATION [None]
  - URTICARIA [None]
